FAERS Safety Report 20506678 (Version 1)
Quarter: 2022Q1

REPORT INFORMATION
  Report Type: Spontaneous
  Country: US (occurrence: None)
  Receive Date: 20220222
  Receipt Date: 20220222
  Transmission Date: 20220423
  Serious: Yes (Life-Threatening, Other)
  Sender: FDA-Public Use
  Company Number: None

PATIENT
  Age: 54 Year
  Sex: Male
  Weight: 85.5 kg

DRUGS (2)
  1. LISINOPRIL [Suspect]
     Active Substance: LISINOPRIL
     Indication: Hypertension
     Dosage: 1 DF DOSAGE DAILY ORAL?
     Route: 048
     Dates: start: 20220214, end: 20220220
  2. LISINOPRIL [Concomitant]
     Active Substance: LISINOPRIL
     Dates: start: 20220214, end: 20220220

REACTIONS (10)
  - Movement disorder [None]
  - Narcolepsy [None]
  - Hepatic pain [None]
  - Food allergy [None]
  - Abdominal discomfort [None]
  - Headache [None]
  - Abdominal pain upper [None]
  - Asthenia [None]
  - Pruritus [None]
  - Product substitution issue [None]

NARRATIVE: CASE EVENT DATE: 20220216
